FAERS Safety Report 12182517 (Version 1)
Quarter: 2016Q1

REPORT INFORMATION
  Report Type: Spontaneous
  Country: US (occurrence: US)
  Receive Date: 20160316
  Receipt Date: 20160316
  Transmission Date: 20160526
  Serious: Yes (Other)
  Sender: FDA-Public Use
  Company Number: US-ASTRAZENECA-2016SE28163

PATIENT
  Age: 52 Year
  Sex: Female

DRUGS (1)
  1. NEXIUM 24HR [Suspect]
     Active Substance: ESOMEPRAZOLE MAGNESIUM
     Dosage: UNK
     Route: 048

REACTIONS (9)
  - Anger [Unknown]
  - Impaired quality of life [Unknown]
  - Malabsorption [Unknown]
  - Product use issue [Unknown]
  - Vitamin B12 deficiency [Unknown]
  - Hypoglycaemia [Unknown]
  - Dyspepsia [Unknown]
  - Gastrointestinal disorder [Not Recovered/Not Resolved]
  - Anxiety [Unknown]
